FAERS Safety Report 7419145-7 (Version None)
Quarter: 2011Q2

REPORT INFORMATION
  Report Type: 
  Country: None (occurrence: None)
  Receive Date: 20110415
  Receipt Date: 20110407
  Transmission Date: 20111010
  Serious: Yes (Life-Threatening, Other)
  Sender: FDA-Public Use
  Company Number: US-GENZYME-CLOF-1001361

PATIENT
  Sex: Female

DRUGS (3)
  1. THIOTEPA [Suspect]
     Indication: ACUTE MYELOID LEUKAEMIA
     Dosage: UNK
     Route: 065
  2. MELPHALAN HYDROCHLORIDE [Suspect]
     Indication: ACUTE MYELOID LEUKAEMIA
     Dosage: UNK
     Route: 065
  3. CLOLAR [Suspect]
     Indication: ACUTE MYELOID LEUKAEMIA
     Dosage: 20 MG/M2, QDX5
     Route: 042

REACTIONS (10)
  - RENAL FAILURE [None]
  - HYPERBILIRUBINAEMIA [None]
  - MUCOSAL INFLAMMATION [None]
  - THROMBOSIS [None]
  - HEPATIC FUNCTION ABNORMAL [None]
  - HYPOXIA [None]
  - CEREBRAL ISCHAEMIA [None]
  - ATRIAL FLUTTER [None]
  - HYPERTENSION [None]
  - ACUTE RESPIRATORY DISTRESS SYNDROME [None]
